FAERS Safety Report 5289855-9 (Version None)
Quarter: 2007Q2

REPORT INFORMATION
  Report Type: 
  Country: None (occurrence: None)
  Receive Date: 20070406
  Receipt Date: 20070327
  Transmission Date: 20071010
  Serious: Yes (Life-Threatening)
  Sender: FDA-Public Use
  Company Number: JP-SANOFI-SYNTHELABO-A01200702795

PATIENT
  Sex: Female
  Weight: 32 kg

DRUGS (6)
  1. DECADRON [Concomitant]
     Indication: PREMEDICATION
     Route: 041
     Dates: start: 20060509, end: 20070208
  2. KYTRIL [Concomitant]
     Indication: PREMEDICATION
     Route: 041
     Dates: start: 20060509, end: 20070208
  3. FLUOROURACIL [Concomitant]
     Dosage: 500MG/BODY=434.8MG/M2 IN BOLUS THEN 2000MG/BODY=1739.1MG/M2 AS CONTINUOUS INFUSION ON DAY 1-2
     Route: 041
     Dates: start: 20060509, end: 20060510
  4. FLUOROURACIL [Concomitant]
     Dosage: 500MG/BODY=434.8MG/M2 IN BOLUS THEN 1500MG/BODY=1304.3MG/M2 AS CONTINUOUS INFUSION ON DAY 1-2
     Route: 041
     Dates: start: 20060523, end: 20070208
  5. ISOVORIN [Concomitant]
     Route: 041
     Dates: start: 20060509, end: 20070208
  6. OXALIPLATIN [Suspect]
     Indication: RECTAL CANCER
     Route: 041
     Dates: start: 20070208, end: 20070208

REACTIONS (2)
  - DISSEMINATED INTRAVASCULAR COAGULATION [None]
  - THROMBOCYTOPENIA [None]
